FAERS Safety Report 9113296 (Version 2)
Quarter: 2013Q1

REPORT INFORMATION
  Report Type: Report from Study
  Country: US (occurrence: US)
  Receive Date: 20130131
  Receipt Date: 20130208
  Transmission Date: 20140127
  Serious: Yes (Hospitalization, Other)
  Sender: FDA-Public Use
  Company Number: US-ABBOTT-13P-163-1039734-00

PATIENT
  Sex: Male
  Weight: 50.8 kg

DRUGS (1)
  1. HUMIRA [Suspect]
     Indication: CROHN^S DISEASE
     Route: 058
     Dates: start: 201210

REACTIONS (2)
  - Intestinal resection [Recovered/Resolved]
  - Ileostomy closure [Recovered/Resolved]
